FAERS Safety Report 25108213 (Version 3)
Quarter: 2025Q2

REPORT INFORMATION
  Report Type: Spontaneous
  Country: US (occurrence: US)
  Receive Date: 20250322
  Receipt Date: 20250407
  Transmission Date: 20250716
  Serious: No
  Sender: SANOFI AVENTIS
  Company Number: US-SA-2025SA083043

PATIENT
  Age: 66 Year
  Sex: Female

DRUGS (2)
  1. DUPIXENT [Suspect]
     Active Substance: DUPILUMAB
     Indication: Neurodermatitis
     Dosage: 300 MG, QOW
     Route: 058
  2. DUPIXENT [Suspect]
     Active Substance: DUPILUMAB
     Dosage: 300 MG, QW
     Route: 058

REACTIONS (11)
  - Skin lesion [Unknown]
  - Condition aggravated [Unknown]
  - Discomfort [Unknown]
  - Condition aggravated [Unknown]
  - Inflammation [Unknown]
  - Condition aggravated [Unknown]
  - Pain [Unknown]
  - Skin burning sensation [Unknown]
  - Condition aggravated [Unknown]
  - Neurodermatitis [Unknown]
  - Off label use [Unknown]
